FAERS Safety Report 8238622-2 (Version None)
Quarter: 2012Q1

REPORT INFORMATION
  Report Type: 
  Country: None (occurrence: None)
  Receive Date: 20120327
  Receipt Date: 20120321
  Transmission Date: 20120608
  Serious: Yes (Hospitalization, Disabling)
  Sender: FDA-Public Use
  Company Number: US-PFIZER INC-2012073666

PATIENT
  Sex: Male
  Weight: 124 kg

DRUGS (4)
  1. LYRICA [Suspect]
     Dosage: 75 MG, 4 CAPSULES DAILY
     Dates: start: 20100101
  2. COUMADIN [Suspect]
     Dosage: UNK
  3. LYRICA [Suspect]
     Indication: NEURALGIA
     Dosage: 75 MG, 2 CAPSULES DAILY
     Dates: start: 20100101, end: 20100101
  4. LYRICA [Suspect]
     Dosage: UNK, DAILY

REACTIONS (2)
  - KNEE ARTHROPLASTY [None]
  - BONE DISORDER [None]
